FAERS Safety Report 10729013 (Version 1)
Quarter: 2015Q1

REPORT INFORMATION
  Report Type: Spontaneous
  Country: US (occurrence: None)
  Receive Date: 20150120
  Receipt Date: 20150120
  Transmission Date: 20150721
  Serious: No
  Sender: FDA-Public Use
  Company Number: None

PATIENT
  Age: 58 Year
  Sex: Female
  Weight: 68.04 kg

DRUGS (1)
  1. BUPROPRION SR [Suspect]
     Active Substance: BUPROPION
     Indication: DEPRESSION
     Dosage: 1
     Route: 048
     Dates: start: 20150101, end: 20150118

REACTIONS (3)
  - Skin disorder [None]
  - Alopecia [None]
  - Pruritus [None]

NARRATIVE: CASE EVENT DATE: 20150101
